FAERS Safety Report 8448533-5 (Version None)
Quarter: 2012Q2

REPORT INFORMATION
  Report Type: 
  Country: None (occurrence: None)
  Receive Date: 20120619
  Receipt Date: 20120604
  Transmission Date: 20120825
  Serious: Yes (Other)
  Sender: FDA-Public Use
  Company Number: US-ROCHE-1077773

PATIENT

DRUGS (2)
  1. BENDAMUSTINE HYDROCHLORIDE [Suspect]
     Indication: CHRONIC LYMPHOCYTIC LEUKAEMIA
  2. MABTHERA [Suspect]
     Indication: CHRONIC LYMPHOCYTIC LEUKAEMIA

REACTIONS (14)
  - BONE MARROW TOXICITY [None]
  - ABDOMINAL PAIN [None]
  - HERPES ZOSTER [None]
  - LUNG DISORDER [None]
  - FATIGUE [None]
  - RASH [None]
  - FUNGAL SEPSIS [None]
  - UPPER RESPIRATORY TRACT INFECTION [None]
  - GASTROINTESTINAL DISORDER [None]
  - SEPSIS [None]
  - WEIGHT DECREASED [None]
  - PNEUMONIA [None]
  - KLEBSIELLA SEPSIS [None]
  - PYREXIA [None]
